FAERS Safety Report 14290498 (Version 1)
Quarter: 2017Q4

REPORT INFORMATION
  Report Type: Spontaneous
  Country: US (occurrence: US)
  Receive Date: 20171215
  Receipt Date: 20171215
  Transmission Date: 20180321
  Serious: No
  Sender: FDA-Public Use
  Company Number: US-ASTRAZENECA-2017SF27447

PATIENT
  Sex: Male

DRUGS (1)
  1. EKLIRA [Suspect]
     Active Substance: ACLIDINIUM BROMIDE
     Route: 055

REACTIONS (2)
  - Product taste abnormal [Unknown]
  - Device malfunction [Unknown]
